FAERS Safety Report 7261704-9 (Version None)
Quarter: 2011Q1

REPORT INFORMATION
  Report Type: 
  Country: None (occurrence: None)
  Receive Date: 20110130
  Receipt Date: 20101023
  Transmission Date: 20110831
  Serious: No
  Sender: FDA-Public Use
  Company Number: US-ABBOTT-10P-163-0680956-00

PATIENT
  Age: 79 Year
  Sex: Male

DRUGS (6)
  1. TOPROL-XL [Concomitant]
     Indication: ANXIETY
  2. LASIX [Concomitant]
     Indication: PRODUCT USED FOR UNKNOWN INDICATION
  3. MIRAPEX [Concomitant]
     Indication: DEPRESSION
  4. CELEXA [Concomitant]
     Indication: DEPRESSION
  5. HUMIRA [Suspect]
     Indication: PSORIASIS
     Dosage: 160 MG DAY 1, 80 MG DAY 15, THEN 40 MG QOW
     Dates: start: 20100927
  6. TOPROL-XL [Concomitant]
     Indication: PARKINSON'S DISEASE

REACTIONS (1)
  - PSORIASIS [None]
